FAERS Safety Report 13062191 (Version 3)
Quarter: 2017Q1

REPORT INFORMATION
  Report Type: Spontaneous
  Country: TW (occurrence: TW)
  Receive Date: 20161226
  Receipt Date: 20170222
  Transmission Date: 20170428
  Serious: Yes (Hospitalization, Other)
  Sender: FDA-Public Use
  Company Number: TW-AMGEN-TWNSP2016183018

PATIENT
  Age: 82 Year
  Sex: Male

DRUGS (1)
  1. ENBREL [Suspect]
     Active Substance: ETANERCEPT
     Indication: PSORIATIC ARTHROPATHY
     Dosage: 50 MG, WEEKLY
     Route: 058
     Dates: start: 20160817, end: 20161207

REACTIONS (10)
  - Cardiomegaly [Recovering/Resolving]
  - Decubitus ulcer [Not Recovered/Not Resolved]
  - Hypersomnia [Recovering/Resolving]
  - Lung infection [Recovering/Resolving]
  - Asthenia [Recovering/Resolving]
  - Fatigue [Recovering/Resolving]
  - Cerebral atrophy [Recovering/Resolving]
  - Septic shock [Recovering/Resolving]
  - Hypotension [Recovering/Resolving]
  - Renal atrophy [Recovering/Resolving]

NARRATIVE: CASE EVENT DATE: 2016
